FAERS Safety Report 23328060 (Version 1)
Quarter: 2023Q4

REPORT INFORMATION
  Report Type: Spontaneous
  Country: US (occurrence: US)
  Receive Date: 20231221
  Receipt Date: 20231221
  Transmission Date: 20240110
  Serious: No
  Sender: FDA-Public Use
  Company Number: US-BAUSCH-BL-2023-018484

PATIENT
  Age: 25 Year
  Sex: Female

DRUGS (1)
  1. ELIDEL [Suspect]
     Active Substance: PIMECROLIMUS
     Indication: Product used for unknown indication
     Route: 065

REACTIONS (5)
  - Lacrimation increased [Unknown]
  - Injection site pain [Unknown]
  - Irritability [Unknown]
  - Erythema [Unknown]
  - Pruritus [Unknown]
